FAERS Safety Report 8312346-5 (Version None)
Quarter: 2012Q2

REPORT INFORMATION
  Report Type: 
  Country: None (occurrence: None)
  Receive Date: 20120425
  Receipt Date: 20120411
  Transmission Date: 20120825
  Serious: Yes (Hospitalization)
  Sender: FDA-Public Use
  Company Number: FR-AMGEN-FRASP2012000829

PATIENT
  Age: 59 Year
  Sex: Female

DRUGS (4)
  1. AMITRIPTYLINE HCL [Concomitant]
     Indication: ANKYLOSING SPONDYLITIS
     Dosage: UNK
  2. PARACETAMOL [Concomitant]
     Dosage: UNK
  3. DUPHALAC [Concomitant]
     Dosage: UNK
  4. ENBREL [Suspect]
     Indication: ANKYLOSING SPONDYLITIS
     Dosage: ONE INJECTION EVERY 15 DAYS
     Route: 058
     Dates: start: 20060101, end: 20111001

REACTIONS (1)
  - MYELITIS [None]
